FAERS Safety Report 23247857 (Version 3)
Quarter: 2024Q1

REPORT INFORMATION
  Report Type: Report from Study
  Country: ES (occurrence: ES)
  Receive Date: 20231130
  Receipt Date: 20240202
  Transmission Date: 20240409
  Serious: Yes (Life-Threatening, Hospitalization, Other)
  Sender: FDA-Public Use
  Company Number: ES-PFIZER INC-PV202300138224

PATIENT
  Age: 45 Year
  Sex: Male
  Weight: 64.5 kg

DRUGS (23)
  1. CISPLATIN [Suspect]
     Active Substance: CISPLATIN
     Indication: Head and neck cancer stage IV
     Dosage: 100 MILLIGRAM/SQ. METER, Q3W
     Route: 042
     Dates: start: 20230509, end: 20230509
  2. CISPLATIN [Suspect]
     Active Substance: CISPLATIN
     Indication: Squamous cell carcinoma of head and neck
     Dosage: 80 MILLIGRAM/SQ. METER, Q3W
     Route: 042
     Dates: start: 20230614, end: 20230614
  3. CISPLATIN [Suspect]
     Active Substance: CISPLATIN
     Dosage: 64 MILLIGRAM/SQ. METER, Q3W
     Route: 042
     Dates: start: 20230718, end: 20230718
  4. TECAGINLIMAB [Suspect]
     Active Substance: TECAGINLIMAB
     Indication: Head and neck cancer stage IV
     Dosage: 100 MILLIGRAM, Q3W
     Route: 042
     Dates: start: 20230614, end: 20230614
  5. TECAGINLIMAB [Suspect]
     Active Substance: TECAGINLIMAB
     Indication: Squamous cell carcinoma of head and neck
     Dosage: 100 MILLIGRAM, Q3W
     Route: 042
     Dates: start: 20230509, end: 20230509
  6. TECAGINLIMAB [Suspect]
     Active Substance: TECAGINLIMAB
     Dosage: 100 MILLIGRAM, Q3W
     Route: 042
     Dates: start: 20230718, end: 20230718
  7. PEMBROLIZUMAB [Suspect]
     Active Substance: PEMBROLIZUMAB
     Indication: Head and neck cancer stage IV
     Dosage: 200 MILLIGRAM, Q3W (200 MG, EVERY 3 WEEKS)
     Route: 042
     Dates: start: 20230509, end: 20230509
  8. PEMBROLIZUMAB [Suspect]
     Active Substance: PEMBROLIZUMAB
     Indication: Squamous cell carcinoma of head and neck
     Dosage: 200 MILLIGRAM, Q3W
     Route: 042
     Dates: start: 20230614, end: 20230614
  9. PEMBROLIZUMAB [Suspect]
     Active Substance: PEMBROLIZUMAB
     Dosage: 200 MILLIGRAM, Q3W
     Route: 042
     Dates: start: 20230718, end: 20230718
  10. FLUOROURACIL [Suspect]
     Active Substance: FLUOROURACIL
     Indication: Head and neck cancer stage IV
     Dosage: 1000 MILLIGRAM/SQ. METER, CYCLE (ON DAY 1,2,3,4, 1Q3W)
     Route: 042
     Dates: start: 20230509, end: 20230513
  11. FLUOROURACIL [Suspect]
     Active Substance: FLUOROURACIL
     Indication: Squamous cell carcinoma of head and neck
     Dosage: 800 MILLIGRAM/SQ. METER, CYCLE (ON DAY 1,2,3,4, 1Q3W)
     Route: 042
     Dates: start: 20230614, end: 20230618
  12. FLUOROURACIL [Suspect]
     Active Substance: FLUOROURACIL
     Dosage: 640 MILLIGRAM/SQ. METER, CYCLE
     Route: 042
     Dates: start: 20230718, end: 20230722
  13. AVIBACTAM SODIUM\CEFTAZIDIME [Concomitant]
     Active Substance: AVIBACTAM SODIUM\CEFTAZIDIME
     Indication: Cough
     Dosage: UNK
     Route: 065
     Dates: start: 20230608, end: 20230609
  14. AVIBACTAM SODIUM\CEFTAZIDIME [Concomitant]
     Active Substance: AVIBACTAM SODIUM\CEFTAZIDIME
     Dosage: UNK
     Route: 065
     Dates: start: 20230626, end: 20230707
  15. AZTREONAM [Concomitant]
     Active Substance: AZTREONAM
     Dosage: UNK
     Route: 065
     Dates: start: 20230630, end: 20230707
  16. FLUCONAZOLE [Concomitant]
     Active Substance: FLUCONAZOLE
     Dosage: UNK
     Route: 065
     Dates: start: 20230630, end: 20230714
  17. APREPITANT [Concomitant]
     Active Substance: APREPITANT
     Dosage: UNK
     Route: 065
     Dates: start: 20230509, end: 20230718
  18. GRANULOCYTE COLONY-STIMULATING FACTOR NOS [Concomitant]
     Active Substance: GRANULOCYTE COLONY-STIMULATING FACTOR NOS
     Dosage: UNK
     Route: 065
     Dates: start: 20230626, end: 20230707
  19. ONDANSETRON [Concomitant]
     Active Substance: ONDANSETRON
     Dosage: UNK
     Route: 065
     Dates: start: 20230509, end: 20230718
  20. DEXAMETHASONE [Concomitant]
     Active Substance: DEXAMETHASONE
     Dosage: UNK
     Route: 065
     Dates: start: 20230509, end: 20230718
  21. PEGFILGRASTIM [Concomitant]
     Active Substance: PEGFILGRASTIM
     Dosage: UNK
     Route: 065
     Dates: start: 20230615, end: 20230615
  22. VANCOMYCIN [Concomitant]
     Active Substance: VANCOMYCIN
     Dosage: UNK
     Route: 065
     Dates: start: 20230529, end: 20230609
  23. CALCIUM CHLORIDE\POTASSIUM CHLORIDE\SODIUM ACETATE\SODIUM CHLORIDE [Concomitant]
     Active Substance: CALCIUM CHLORIDE\POTASSIUM CHLORIDE\SODIUM ACETATE\SODIUM CHLORIDE
     Dosage: UNK
     Route: 065
     Dates: start: 20230626, end: 20230707

REACTIONS (8)
  - Febrile neutropenia [Recovered/Resolved]
  - Neutropenia [Unknown]
  - Thrombocytopenia [Unknown]
  - Infected neoplasm [Recovered/Resolved]
  - Malignant neoplasm progression [Unknown]
  - Pseudomonas infection [Unknown]
  - Streptococcal infection [Unknown]
  - Haemoglobin decreased [Unknown]

NARRATIVE: CASE EVENT DATE: 20230516
